FAERS Safety Report 8089428-9 (Version None)
Quarter: 2012Q1

REPORT INFORMATION
  Report Type: 
  Country: None (occurrence: None)
  Receive Date: 20120128
  Receipt Date: 20110627
  Transmission Date: 20120608
  Serious: No
  Sender: FDA-Public Use
  Company Number: US-ABBOTT-11P-163-0834772-00

PATIENT
  Sex: Female
  Weight: 81.72 kg

DRUGS (8)
  1. LOSARTAN POTASSIUM [Concomitant]
     Indication: HYPERTENSION
  2. LASIX [Concomitant]
     Indication: OEDEMA PERIPHERAL
  3. LASIX [Concomitant]
     Indication: HYPERTENSION
  4. METFFORMIN HYDROCHLORIDE [Concomitant]
     Indication: TYPE 2 DIABETES MELLITUS
  5. HUMIRA [Suspect]
     Indication: PSORIATIC ARTHROPATHY
     Dates: start: 20100101
  6. COUMADIN [Concomitant]
     Indication: HEART VALVE REPLACEMENT
     Dates: start: 20100101
  7. FLUOXETINE [Concomitant]
     Indication: DEPRESSION
  8. FLURAZEPAM [Concomitant]
     Indication: ANXIETY
     Dosage: USES RARELY, AS NEEDED

REACTIONS (4)
  - VULVOVAGINAL MYCOTIC INFECTION [None]
  - VAGINAL HAEMORRHAGE [None]
  - VITAMIN D DEFICIENCY [None]
  - VAGINAL DISCHARGE [None]
